FAERS Safety Report 8295841-7 (Version None)
Quarter: 2012Q2

REPORT INFORMATION
  Report Type: 
  Country: None (occurrence: None)
  Receive Date: 20120418
  Receipt Date: 20111213
  Transmission Date: 20120825
  Serious: Yes (Other)
  Sender: FDA-Public Use
  Company Number: KR-ROCHE-1023829

PATIENT
  Sex: Male

DRUGS (4)
  1. RANIBIZUMAB [Suspect]
     Indication: AGE-RELATED MACULAR DEGENERATION
     Route: 050
  2. RANIBIZUMAB [Suspect]
     Route: 050
     Dates: start: 20111115
  3. BEVACIZUMAB [Suspect]
     Indication: AGE-RELATED MACULAR DEGENERATION
  4. RANIBIZUMAB [Suspect]
     Route: 050

REACTIONS (4)
  - BLINDNESS UNILATERAL [None]
  - EYE DISORDER [None]
  - VISUAL ACUITY REDUCED [None]
  - RETINAL HAEMORRHAGE [None]
